FAERS Safety Report 8546381-9 (Version None)
Quarter: 2012Q3

REPORT INFORMATION
  Report Type: 
  Country: None (occurrence: None)
  Receive Date: 20120727
  Receipt Date: 20120104
  Transmission Date: 20120928
  Serious: No
  Sender: FDA-Public Use
  Company Number: US-ASTRAZENECA-2012SE00635

PATIENT
  Age: 52 Year
  Sex: Male
  Weight: 83.9 kg

DRUGS (3)
  1. TEGRETOL [Concomitant]
  2. SEROQUEL [Suspect]
     Route: 048
  3. SEROQUEL [Suspect]
     Indication: BIPOLAR I DISORDER
     Route: 048

REACTIONS (4)
  - DIZZINESS [None]
  - SEDATION [None]
  - HANGOVER [None]
  - SOMNOLENCE [None]
